FAERS Safety Report 4449498-3 (Version None)
Quarter: 2004Q3

REPORT INFORMATION
  Report Type: 
  Country: None (occurrence: None)
  Receive Date: 20040913
  Receipt Date: 20040913
  Transmission Date: 20050211
  Serious: Yes (Life-Threatening)
  Sender: FDA-Public Use
  Company Number: None

PATIENT
  Age: 51 Year
  Sex: Female
  Weight: 58.9676 kg

DRUGS (7)
  1. NEURONTIN [Suspect]
     Indication: MOOD ALTERED
     Dates: start: 20020901, end: 20030905
  2. NEURONTIN [Suspect]
     Indication: NEUROPATHY PERIPHERAL
     Dates: start: 20020901, end: 20030905
  3. BEXTRA [Concomitant]
  4. PROVIL [Concomitant]
  5. LAMICTAL [Concomitant]
  6. EFFECTOR [Concomitant]
  7. WELLBRUTIN [Concomitant]

REACTIONS (10)
  - AGITATION [None]
  - ANXIETY [None]
  - ARTHRALGIA [None]
  - CONDITION AGGRAVATED [None]
  - CONFUSIONAL STATE [None]
  - DEPRESSION [None]
  - IMPULSIVE BEHAVIOUR [None]
  - PANIC ATTACK [None]
  - SUICIDAL IDEATION [None]
  - SUICIDE ATTEMPT [None]
